FAERS Safety Report 13642115 (Version 1)
Quarter: 2017Q2

REPORT INFORMATION
  Report Type: Spontaneous
  Country: US (occurrence: US)
  Receive Date: 20170612
  Receipt Date: 20170612
  Transmission Date: 20170830
  Serious: Yes (Life-Threatening, Hospitalization, Other)
  Sender: FDA-Public Use
  Company Number: US-RECKITT BENCKISER HEALTHCARE INT LIMITED-RB-88029-2017

PATIENT
  Age: 59 Year
  Sex: Female

DRUGS (1)
  1. UNSPECIFIED PHENYLEPHRINE HYDROCHLORIDE [Suspect]
     Active Substance: PHENYLEPHRINE HYDROCHLORIDE
     Indication: SINUSITIS
     Dosage: UNK
     Route: 048

REACTIONS (9)
  - Asthenia [Not Recovered/Not Resolved]
  - Headache [Recovering/Resolving]
  - Gaze palsy [Recovering/Resolving]
  - Reversible cerebral vasoconstriction syndrome [Recovering/Resolving]
  - Aphasia [Not Recovered/Not Resolved]
  - Anal incontinence [Recovering/Resolving]
  - Ataxia [Not Recovered/Not Resolved]
  - Hemiparesis [Recovering/Resolving]
  - Cerebral haemorrhage [Recovering/Resolving]
